FAERS Safety Report 11679160 (Version 2)
Quarter: 2015Q4

REPORT INFORMATION
  Report Type: Spontaneous
  Country: US (occurrence: US)
  Receive Date: 20151027
  Receipt Date: 20151104
  Transmission Date: 20160304
  Serious: No
  Sender: FDA-Public Use
  Company Number: US-ELI_LILLY_AND_COMPANY-US201008004695

PATIENT
  Age: 72 Year
  Sex: Female

DRUGS (22)
  1. LIPITOR [Concomitant]
     Active Substance: ATORVASTATIN CALCIUM
  2. FORTEO [Suspect]
     Active Substance: TERIPARATIDE
     Indication: OSTEOPOROSIS
     Dosage: 20 UG, DAILY (1/D)
     Route: 058
  3. MUCUS RELIEF [Concomitant]
     Active Substance: GUAIFENESIN
  4. ALBUTEROL. [Concomitant]
     Active Substance: ALBUTEROL
  5. PROAIR HFA [Concomitant]
     Active Substance: ALBUTEROL SULFATE
  6. BABY ASPIRIN [Concomitant]
     Active Substance: ASPIRIN
  7. FLUTICASONE [Concomitant]
     Active Substance: FLUTICASONE\FLUTICASONE PROPIONATE
  8. ACETYLLEUCINE [Concomitant]
     Active Substance: ACETYLLEUCINE
  9. CETOCONAZOL [Concomitant]
     Active Substance: KETOCONAZOLE
  10. XANAX [Concomitant]
     Active Substance: ALPRAZOLAM
  11. ALPRAZOLAM. [Concomitant]
     Active Substance: ALPRAZOLAM
  12. ESTRACE [Concomitant]
     Active Substance: ESTRADIOL
  13. SIMVACOR [Concomitant]
     Active Substance: SIMVASTATIN
  14. LEXAPRO [Concomitant]
     Active Substance: ESCITALOPRAM OXALATE
  15. RANITIDINE [Concomitant]
     Active Substance: RANITIDINE\RANITIDINE HYDROCHLORIDE
  16. FORTEO [Suspect]
     Active Substance: TERIPARATIDE
     Dosage: 20 UG, DAILY (1/D)
     Route: 058
  17. EXELON [Concomitant]
     Active Substance: RIVASTIGMINE TARTRATE
  18. FOLIC ACID. [Concomitant]
     Active Substance: FOLIC ACID
  19. FORTEO [Suspect]
     Active Substance: TERIPARATIDE
     Dosage: 20 UG, DAILY (1/D)
     Route: 058
  20. SPIRIVA [Concomitant]
     Active Substance: TIOTROPIUM BROMIDE MONOHYDRATE
  21. BIOTIN [Concomitant]
     Active Substance: BIOTIN
  22. VITAMIN D [Concomitant]
     Active Substance: CHOLECALCIFEROL

REACTIONS (6)
  - Spinal disorder [Unknown]
  - Body height decreased [Not Recovered/Not Resolved]
  - Pain in extremity [Unknown]
  - Arthralgia [Not Recovered/Not Resolved]
  - Limb injury [Recovering/Resolving]
  - Paraesthesia [Unknown]

NARRATIVE: CASE EVENT DATE: 201009
